FAERS Safety Report 4807250-0 (Version None)
Quarter: 2005Q4

REPORT INFORMATION
  Report Type: 
  Country: None (occurrence: None)
  Receive Date: 20051024
  Receipt Date: 20051019
  Transmission Date: 20060501
  Serious: Yes (Hospitalization, Other)
  Sender: FDA-Public Use
  Company Number: JP-BRACCO-BRO-009138

PATIENT
  Age: 66 Year
  Sex: Male

DRUGS (2)
  1. IOPAMIRON [Suspect]
     Route: 042
     Dates: start: 20051003, end: 20051003
  2. IOPAMIRON [Suspect]
     Route: 042
     Dates: start: 20051003, end: 20051003

REACTIONS (5)
  - CEREBRAL INFARCTION [None]
  - DYSPNOEA [None]
  - LOSS OF CONSCIOUSNESS [None]
  - PULMONARY OEDEMA [None]
  - STRIDOR [None]
